FAERS Safety Report 10649034 (Version 1)
Quarter: 2014Q4

REPORT INFORMATION
  Report Type: Spontaneous
  Country: CN (occurrence: CN)
  Receive Date: 20141212
  Receipt Date: 20141212
  Transmission Date: 20150529
  Serious: Yes (Disabling, Other)
  Sender: FDA-Public Use
  Company Number: CN-PFIZER INC-2014337599

PATIENT
  Age: 73 Year
  Sex: Male
  Weight: 53 kg

DRUGS (1)
  1. ZYVOX [Suspect]
     Active Substance: LINEZOLID
     Indication: DRUG THERAPY
     Dosage: 0.6 G, 1X/DAY
     Route: 048
     Dates: start: 20130426, end: 20130502

REACTIONS (2)
  - Platelet count decreased [Recovered/Resolved]
  - Haemorrhage subcutaneous [Recovered/Resolved]

NARRATIVE: CASE EVENT DATE: 20130501
